FAERS Safety Report 7970221-X (Version None)
Quarter: 2011Q4

REPORT INFORMATION
  Report Type: 
  Country: None (occurrence: None)
  Receive Date: 20111212
  Receipt Date: 20111202
  Transmission Date: 20120403
  Serious: Yes (Other)
  Sender: FDA-Public Use
  Company Number: US-JNJFOC-20111101245

PATIENT
  Sex: Female
  Weight: 76.43 kg

DRUGS (3)
  1. TORADOL [Concomitant]
     Indication: PAIN
     Dosage: EVERY 6TH HOUR
     Route: 048
     Dates: start: 20111013, end: 20111018
  2. NUCYNTA [Suspect]
     Indication: PAIN
     Dosage: 100 MG EVERY 4 HOUR AS NECESSARY
     Route: 048
     Dates: start: 20111013, end: 20111015
  3. NEURONTIN [Concomitant]
     Indication: PAIN
     Dosage: 3 TIMES A DAY
     Route: 048
     Dates: start: 20111013, end: 20111014

REACTIONS (6)
  - BLOOD UREA INCREASED [None]
  - LETHARGY [None]
  - HYPOTENSION [None]
  - ACNE [None]
  - STOMATITIS [None]
  - HYPERSENSITIVITY [None]
